FAERS Safety Report 6169314-1 (Version None)
Quarter: 2009Q2

REPORT INFORMATION
  Report Type: 
  Country: None (occurrence: None)
  Receive Date: 20090424
  Receipt Date: 20090410
  Transmission Date: 20091009
  Serious: Yes (Other)
  Sender: FDA-Public Use
  Company Number: 2009001119

PATIENT
  Sex: 0

DRUGS (1)
  1. ERLOTINIB (ERLOTINIB) (TABLET) (ERLOTINIB) [Suspect]
     Indication: NON-SMALL CELL LUNG CANCER
     Dosage: 150  MG, QD, ORAL
     Route: 048

REACTIONS (2)
  - SCAB [None]
  - SKIN ULCER [None]
